FAERS Safety Report 23352351 (Version 5)
Quarter: 2025Q4

REPORT INFORMATION
  Report Type: Report from Study
  Country: CA (occurrence: CA)
  Receive Date: 20231229
  Receipt Date: 20251202
  Transmission Date: 20260117
  Serious: Yes (Hospitalization, Other)
  Sender: HLS THERAPEUTICS
  Company Number: CA-HLS-202302872

PATIENT
  Age: 56 Year
  Sex: Female

DRUGS (1)
  1. CLOZARIL [Suspect]
     Active Substance: CLOZAPINE
     Indication: Adjustment disorder
     Dosage: 100MG AROUND 2010
     Route: 048
     Dates: start: 20080826, end: 20250211

REACTIONS (4)
  - Colitis microscopic [Unknown]
  - Breast cancer [Not Recovered/Not Resolved]
  - Neoplasm malignant [Unknown]
  - Bundle branch block right [Unknown]

NARRATIVE: CASE EVENT DATE: 20231101
